FAERS Safety Report 14051723 (Version 3)
Quarter: 2018Q3

REPORT INFORMATION
  Report Type: Spontaneous
  Country: US (occurrence: US)
  Receive Date: 20171006
  Receipt Date: 20180723
  Transmission Date: 20181010
  Serious: Yes (Other)
  Sender: FDA-Public Use
  Company Number: US-ASTELLAS-2017US039806

PATIENT
  Age: 68 Year
  Sex: Male

DRUGS (1)
  1. XTANDI [Suspect]
     Active Substance: ENZALUTAMIDE
     Indication: PRODUCT USED FOR UNKNOWN INDICATION
     Dosage: UNK UNK, UNKNOWN FREQ.
     Route: 065

REACTIONS (7)
  - Back pain [Unknown]
  - Facial pain [Unknown]
  - Product physical issue [Unknown]
  - Injury [Unknown]
  - Discomfort [Unknown]
  - Product storage error [Unknown]
  - Herpes simplex [Unknown]

NARRATIVE: CASE EVENT DATE: 20170929
